FAERS Safety Report 15245039 (Version 2)
Quarter: 2025Q4

REPORT INFORMATION
  Report Type: Spontaneous
  Country: US (occurrence: US)
  Receive Date: 20180806
  Receipt Date: 20251205
  Transmission Date: 20260118
  Serious: Yes (Hospitalization, Other)
  Sender: BAYER HEALTHCARE PHARMACEUTICALS INC.
  Company Number: US-BAYER-2018-140460

PATIENT
  Age: 36 Year
  Sex: Female

DRUGS (1)
  1. MIRENA [Suspect]
     Active Substance: LEVONORGESTREL
     Dosage: 20?G/DAY
     Route: 015
     Dates: start: 2017

REACTIONS (21)
  - Premenstrual dysphoric disorder [Not Recovered/Not Resolved]
  - Syncope [None]
  - Mood altered [Recovering/Resolving]
  - Device allergy [Recovering/Resolving]
  - Back pain [Not Recovered/Not Resolved]
  - Fungal infection [Not Recovered/Not Resolved]
  - Blood oestrogen increased [None]
  - Visual impairment [Not Recovered/Not Resolved]
  - Migraine [Not Recovered/Not Resolved]
  - Vomiting [None]
  - Adrenal disorder [None]
  - Weight decreased [Recovering/Resolving]
  - Stress [Recovering/Resolving]
  - Depression [Recovering/Resolving]
  - Abdominal distension [Not Recovered/Not Resolved]
  - Breast discomfort [Not Recovered/Not Resolved]
  - Polymenorrhoea [Not Recovered/Not Resolved]
  - Hormone level abnormal [None]
  - Tinnitus [Not Recovered/Not Resolved]
  - Headache [Not Recovered/Not Resolved]
  - Vision blurred [Not Recovered/Not Resolved]

NARRATIVE: CASE EVENT DATE: 20170101
